FAERS Safety Report 7772305-8 (Version None)
Quarter: 2011Q3

REPORT INFORMATION
  Report Type: 
  Country: None (occurrence: None)
  Receive Date: 20110922
  Receipt Date: 20100809
  Transmission Date: 20111222
  Serious: Yes (Hospitalization, Other)
  Sender: FDA-Public Use
  Company Number: US-ASTRAZENECA-2006UW24895

PATIENT
  Age: 18325 Day
  Sex: Male
  Weight: 61.2 kg

DRUGS (12)
  1. SEROQUEL [Suspect]
     Dosage: 100-300 MG
     Route: 048
     Dates: start: 20020125, end: 20050907
  2. REMERON [Concomitant]
     Route: 048
     Dates: start: 20020125
  3. SEROQUEL [Suspect]
     Indication: DEPRESSION
     Route: 048
     Dates: start: 20020101, end: 20060101
  4. SEROQUEL [Suspect]
     Dosage: 100-300 MG
     Route: 048
     Dates: start: 20020125, end: 20050907
  5. SEROQUEL [Suspect]
     Indication: SCHIZOPHRENIA
     Route: 048
     Dates: start: 20020101, end: 20060101
  6. SEROQUEL [Suspect]
     Dosage: 100-300 MG
     Route: 048
     Dates: start: 20020125, end: 20050907
  7. SEROQUEL [Suspect]
     Dosage: 100-300 MG
     Route: 048
     Dates: start: 20020125, end: 20050907
  8. GEODON [Concomitant]
     Dosage: 20-80 MG
  9. RISPERDAL [Concomitant]
  10. ZYPREXA [Concomitant]
     Route: 048
     Dates: start: 20020125
  11. SEROQUEL [Suspect]
     Indication: ANXIETY
     Route: 048
     Dates: start: 20020101, end: 20060101
  12. SEROQUEL [Suspect]
     Indication: BIPOLAR DISORDER
     Route: 048
     Dates: start: 20020101, end: 20060101

REACTIONS (6)
  - TYPE 2 DIABETES MELLITUS [None]
  - ADVERSE DRUG REACTION [None]
  - DIABETIC COMPLICATION [None]
  - DIABETIC KETOACIDOSIS [None]
  - DIABETIC COMA [None]
  - DIABETES MELLITUS [None]
